FAERS Safety Report 5490462-3 (Version None)
Quarter: 2007Q4

REPORT INFORMATION
  Report Type: 
  Country: None (occurrence: None)
  Receive Date: 20071019
  Receipt Date: 20071015
  Transmission Date: 20080405
  Serious: Yes (Death, Other)
  Sender: FDA-Public Use
  Company Number: PHFR2004GB03854

PATIENT
  Sex: Female

DRUGS (1)
  1. TERBINAFINE HYDROCHLORIDE [Suspect]
     Indication: ONYCHOMYCOSIS
     Route: 048

REACTIONS (6)
  - ARTHRITIS [None]
  - ERYTHEMA MULTIFORME [None]
  - LEUKOPENIA [None]
  - MYOCARDIAL INFARCTION [None]
  - RASH MACULAR [None]
  - SYSTEMIC LUPUS ERYTHEMATOSUS [None]
